FAERS Safety Report 7374485-5 (Version None)
Quarter: 2011Q1

REPORT INFORMATION
  Report Type: 
  Country: None (occurrence: None)
  Receive Date: 20110325
  Receipt Date: 20110110
  Transmission Date: 20110831
  Serious: No
  Sender: FDA-Public Use
  Company Number: US-MYLANLABS-2011S1000862

PATIENT
  Sex: Female

DRUGS (3)
  1. FENTANYL-100 [Suspect]
     Indication: NECK PAIN
     Dosage: CHANGED Q48H
     Route: 062
     Dates: start: 20060101
  2. ASKINA DERM FILM DRESSING [Suspect]
     Dosage: Q48HRS
     Route: 062
     Dates: start: 20100101, end: 20100101
  3. FENTANYL-100 [Suspect]
     Indication: BACK PAIN
     Dosage: CHANGED Q48H
     Route: 062
     Dates: start: 20060101

REACTIONS (5)
  - BACK PAIN [None]
  - DRUG WITHDRAWAL SYNDROME [None]
  - DRUG EFFECT DECREASED [None]
  - NECK PAIN [None]
  - APPLICATION SITE VESICLES [None]
